FAERS Safety Report 9131439 (Version 8)
Quarter: 2013Q4

REPORT INFORMATION
  Report Type: Spontaneous
  Country: US (occurrence: US)
  Receive Date: 20130301
  Receipt Date: 20131226
  Transmission Date: 20140711
  Serious: No
  Sender: FDA-Public Use
  Company Number: US-PFIZER INC-2013071911

PATIENT
  Age: 80 Year
  Sex: Male
  Weight: 79.37 kg

DRUGS (12)
  1. SUTENT [Suspect]
     Indication: HEPATIC CANCER
     Dosage: 25 MG, ALTERNATE DAY
     Route: 048
     Dates: start: 20130212
  2. SUTENT [Suspect]
     Dosage: 12.5 MG, ALTERNATE DAY
     Route: 048
     Dates: start: 20130213
  3. SUTENT [Suspect]
     Dosage: 37.5 MG (25MG AND 12.5MG CAPSULE TOGETHER), UNK
     Dates: end: 20130524
  4. SUTENT [Suspect]
     Dosage: 37.5 MG, 1X/DAY
     Dates: end: 20130530
  5. SUTENT [Suspect]
     Dosage: 25 MG, DAILY
     Dates: start: 20130706, end: 20131112
  6. XANAX [Concomitant]
     Indication: DEPRESSION
     Dosage: 0.25 MG, 4X/DAY
     Route: 048
  7. PROTONIX [Concomitant]
     Dosage: 40 MG, 2X/DAY
     Route: 048
  8. BISOPROLOL [Concomitant]
     Dosage: 25 MG, 1X/DAY
     Route: 048
  9. OCUVITE [Concomitant]
     Dosage: 2 TABLETS DAILY
     Route: 048
  10. SALMON OIL [Concomitant]
     Dosage: 1 CAPSULE DAILY
  11. LASIX [Concomitant]
     Dosage: UNK
  12. POTASSIUM [Concomitant]
     Dosage: UNK

REACTIONS (23)
  - Urine odour abnormal [Unknown]
  - Chromaturia [Unknown]
  - Dysuria [Unknown]
  - Anxiety [Unknown]
  - Fatigue [Unknown]
  - Onychoclasis [Unknown]
  - Nail disorder [Unknown]
  - Influenza [Unknown]
  - Abdominal discomfort [Unknown]
  - Pain [Unknown]
  - Nausea [Unknown]
  - Sinusitis [Unknown]
  - Tinnitus [Unknown]
  - Onychomadesis [Unknown]
  - Headache [Unknown]
  - Depression [Unknown]
  - Somnolence [Unknown]
  - Erythema [Unknown]
  - Dizziness [Unknown]
  - Constipation [Unknown]
  - Dysgeusia [Unknown]
  - Mobility decreased [Unknown]
  - Off label use [Unknown]
